FAERS Safety Report 8234062-0 (Version None)
Quarter: 2012Q1

REPORT INFORMATION
  Report Type: 
  Country: None (occurrence: None)
  Receive Date: 20120326
  Receipt Date: 20120326
  Transmission Date: 20120608
  Serious: No
  Sender: FDA-Public Use
  Company Number: None

PATIENT
  Age: 43 Year
  Sex: Female
  Weight: 58.059 kg

DRUGS (3)
  1. LEVOFLOXACIN [Suspect]
  2. LEVOFLOXACIN [Suspect]
     Indication: SINUSITIS
     Dosage: 1 TABLET
     Route: 048
     Dates: start: 20120221, end: 20120301
  3. LEVOFLOXACIN [Suspect]
     Indication: BRONCHITIS
     Dosage: 1 TABLET
     Route: 048
     Dates: start: 20120221, end: 20120301

REACTIONS (7)
  - MUSCULOSKELETAL PAIN [None]
  - MUSCULAR WEAKNESS [None]
  - PAIN [None]
  - PAIN IN EXTREMITY [None]
  - ARTHRALGIA [None]
  - CONTUSION [None]
  - BACK PAIN [None]
